FAERS Safety Report 16072289 (Version 1)
Quarter: 2019Q1

REPORT INFORMATION
  Report Type: Report from Study
  Country: GB (occurrence: GB)
  Receive Date: 20190314
  Receipt Date: 20190314
  Transmission Date: 20190418
  Serious: Yes (Hospitalization)
  Sender: FDA-Public Use
  Company Number: GB-GLAXOSMITHKLINE-GB2019GSK045612

PATIENT
  Age: 28 Year
  Sex: Female

DRUGS (27)
  1. AMLODIPINE [Concomitant]
     Active Substance: AMLODIPINE BESYLATE
     Dosage: UNK
  2. BELIMUMAB [Suspect]
     Active Substance: BELIMUMAB
     Dosage: UNK, CYC
     Route: 042
     Dates: start: 20180202, end: 20180202
  3. BELIMUMAB [Suspect]
     Active Substance: BELIMUMAB
     Dosage: UNK, CYC
     Route: 042
     Dates: start: 20180209, end: 20180209
  4. LAMOTRIGINE TABLETS [Concomitant]
     Active Substance: LAMOTRIGINE
     Dosage: UNK
     Dates: start: 2018
  5. OXYCODONE [Concomitant]
     Active Substance: OXYCODONE
     Dosage: 5 MG, UNK
     Dates: start: 2017
  6. PREDNISOLONE TABLETS [Concomitant]
     Dosage: 50 MG, UNK
     Dates: start: 20141201
  7. PHOSEX [Concomitant]
     Dosage: 1 G, UNK
  8. OMEPRAZOLE. [Concomitant]
     Active Substance: OMEPRAZOLE
     Dosage: UNK
  9. BALNEUM PLUS BATH OIL [Concomitant]
     Dosage: UNK
  10. CORSODYL MOUTHWASH [Concomitant]
     Dosage: UNK
  11. BISOPROLOL TABLETS [Concomitant]
     Active Substance: BISOPROLOL
     Dosage: UNK
     Dates: start: 2017
  12. PARACETAMOL TABLETS [Concomitant]
     Dosage: 500 MG, UNK
  13. CHLORPHENAMINE [Concomitant]
     Active Substance: CHLORPHENIRAMINE MALEATE
     Dosage: UNK
     Dates: start: 2017
  14. ZOPICLONE [Concomitant]
     Active Substance: ZOPICLONE
     Dosage: UNK
  15. FOLIC ACID TABLETS [Concomitant]
     Active Substance: FOLIC ACID
     Dosage: UNK
  16. HYDROXYCHLOROQUINE TABLET [Concomitant]
     Active Substance: HYDROXYCHLOROQUINE
     Dosage: UNK
     Dates: start: 2017
  17. ADCAL D3 CHEWABLE [Concomitant]
     Dosage: UNK
  18. AMITRIPTYLINE [Concomitant]
     Active Substance: AMITRIPTYLINE
     Dosage: UNK
  19. QUININE SULPHATE TABLETS [Concomitant]
     Dosage: UNK
  20. CITALOPRAM [Concomitant]
     Active Substance: CITALOPRAM HYDROBROMIDE
     Dosage: UNK
  21. BUPRENORPHINE PATCH [Concomitant]
     Active Substance: BUPRENORPHINE
     Dosage: UNK
  22. NYSTATIN SUSPENSION [Concomitant]
     Active Substance: NYSTATIN
     Dosage: UNK
  23. BELIMUMAB [Suspect]
     Active Substance: BELIMUMAB
     Indication: SYSTEMIC LUPUS ERYTHEMATOSUS
     Dosage: 1150 MG, CYC
     Route: 042
     Dates: start: 20171123, end: 20171123
  24. ATORVASTATIN TABLETS [Concomitant]
     Active Substance: ATORVASTATIN
     Dosage: UNK
     Dates: start: 2017
  25. PREGABALIN CAPSULE [Concomitant]
     Dosage: UNK
  26. ALFACALCIDOL [Concomitant]
     Active Substance: ALFACALCIDOL
     Dosage: UNK
  27. DOXAZOSIN [Concomitant]
     Active Substance: DOXAZOSIN\DOXAZOSIN MESYLATE
     Dosage: UNK

REACTIONS (5)
  - Nausea [Recovered/Resolved with Sequelae]
  - Vomiting [Recovered/Resolved with Sequelae]
  - Chest pain [Recovered/Resolved with Sequelae]
  - Malaise [Recovered/Resolved with Sequelae]
  - Dyspnoea [Recovered/Resolved with Sequelae]

NARRATIVE: CASE EVENT DATE: 20180406
